FAERS Safety Report 5795159-8 (Version None)
Quarter: 2008Q2

REPORT INFORMATION
  Report Type: 
  Country: None (occurrence: None)
  Receive Date: 20080627
  Receipt Date: 20080627
  Transmission Date: 20081010
  Serious: Yes (Hospitalization)
  Sender: FDA-Public Use
  Company Number: None

PATIENT
  Sex: Female
  Weight: 54 kg

DRUGS (8)
  1. CYCLOPHOSPHAMIDE 1014 MG [Suspect]
     Dosage: 1014 MG
  2. DOXORUBICIN HYDROCHLORIDE 100 MG [Suspect]
  3. HERCEPTIN [Suspect]
  4. ARIMIDEX [Concomitant]
  5. AVELOX [Concomitant]
  6. DILTIAZEM HCL [Concomitant]
  7. FOLIC ACID [Concomitant]
  8. LISINOPRIL [Concomitant]

REACTIONS (7)
  - ASTHENIA [None]
  - DYSPNOEA [None]
  - DYSPNOEA EXERTIONAL [None]
  - EJECTION FRACTION DECREASED [None]
  - FATIGUE [None]
  - POST PROCEDURAL PULMONARY EMBOLISM [None]
  - TACHYCARDIA [None]
